FAERS Safety Report 9340536 (Version 1)
Quarter: 2013Q2

REPORT INFORMATION
  Report Type: Spontaneous
  Country: US (occurrence: None)
  Receive Date: 20130610
  Receipt Date: 20130610
  Transmission Date: 20140414
  Serious: No
  Sender: FDA-Public Use
  Company Number: None

PATIENT
  Age: 64 Year
  Sex: Female

DRUGS (1)
  1. CLONIDINE [Suspect]
     Indication: MENOPAUSE
     Dosage: APR 1- APR 25
     Route: 062

REACTIONS (2)
  - Application site burn [None]
  - Application site vesicles [None]
